FAERS Safety Report 12883270 (Version 1)
Quarter: 2016Q4

REPORT INFORMATION
  Report Type: Spontaneous
  Country: ES (occurrence: ES)
  Receive Date: 20161025
  Receipt Date: 20161025
  Transmission Date: 20170207
  Serious: Yes (Other)
  Sender: FDA-Public Use
  Company Number: ES-EAGLE PHARMACEUTICALS, INC.-ES-2016EAG000707

PATIENT
  Age: 55 Year
  Sex: Male

DRUGS (9)
  1. IDELALISIB [Suspect]
     Active Substance: IDELALISIB
     Dosage: UNK, QD, CYCLE 3
  2. RITUXIMAB [Suspect]
     Active Substance: RITUXIMAB
     Dosage: UNK, MONTHLY, CYCLE 3
  3. BENDAMUSTINE HYDROCLHORIDE [Suspect]
     Active Substance: BENDAMUSTINE HYDROCHLORIDE
     Dosage: UNK, MONTHLY, CYCLE 3
  4. BENDAMUSTINE HYDROCLHORIDE [Suspect]
     Active Substance: BENDAMUSTINE HYDROCHLORIDE
     Dosage: UNK, MONTHLY, CYCLE 2
  5. BENDAMUSTINE HYDROCLHORIDE [Suspect]
     Active Substance: BENDAMUSTINE HYDROCHLORIDE
     Indication: CHRONIC LYMPHOCYTIC LEUKAEMIA
     Dosage: UNK, MONTHLY, CYCLE 1
  6. IDELALISIB [Suspect]
     Active Substance: IDELALISIB
     Dosage: UNK, QD, CYCLE 2
  7. RITUXIMAB [Suspect]
     Active Substance: RITUXIMAB
     Indication: CHRONIC LYMPHOCYTIC LEUKAEMIA
     Dosage: UNK, MONTHLY, CYCLE 1
  8. RITUXIMAB [Suspect]
     Active Substance: RITUXIMAB
     Dosage: UNK, MONTHLY, CYCLE 2
  9. IDELALISIB [Suspect]
     Active Substance: IDELALISIB
     Indication: CHRONIC LYMPHOCYTIC LEUKAEMIA
     Dosage: UNK, QD, CYCLE 1

REACTIONS (8)
  - Pyrexia [Recovered/Resolved]
  - Rash [Recovered/Resolved with Sequelae]
  - Neutropenia [Recovered/Resolved]
  - Eosinophilia [Recovered/Resolved]
  - Dermatitis [Recovered/Resolved with Sequelae]
  - Hypertransaminasaemia [Recovered/Resolved]
  - Liver disorder [Recovered/Resolved]
  - Interstitial lung disease [Recovered/Resolved]
